FAERS Safety Report 16336144 (Version 2)
Quarter: 2019Q2

REPORT INFORMATION
  Report Type: Spontaneous
  Country: JP (occurrence: JP)
  Receive Date: 20190521
  Receipt Date: 20190610
  Transmission Date: 20190711
  Serious: Yes (Other)
  Sender: FDA-Public Use
  Company Number: JP-GLAXOSMITHKLINE-JP2019JPN089146

PATIENT
  Age: 60 Year
  Sex: Female

DRUGS (2)
  1. SAMTIREL [Suspect]
     Active Substance: ATOVAQUONE
     Dosage: UNK
     Route: 048
  2. LACTULOSE. [Suspect]
     Active Substance: LACTULOSE
     Dosage: UNK
     Route: 048

REACTIONS (1)
  - Pneumatosis intestinalis [Unknown]
